FAERS Safety Report 8306240-3 (Version None)
Quarter: 2012Q2

REPORT INFORMATION
  Report Type: 
  Country: None (occurrence: None)
  Receive Date: 20120423
  Receipt Date: 20120418
  Transmission Date: 20120825
  Serious: No
  Sender: FDA-Public Use
  Company Number: US-PFIZER INC-2012097220

PATIENT
  Sex: Female
  Weight: 69.4 kg

DRUGS (5)
  1. LYRICA [Suspect]
     Indication: BACK PAIN
     Dosage: 50 MG, 1X/DAY
     Route: 048
     Dates: start: 20120301, end: 20120301
  2. LYRICA [Suspect]
     Indication: PAIN IN EXTREMITY
     Dosage: 100 MG, 1X/DAY
     Route: 048
     Dates: start: 20120301, end: 20120401
  3. ZOLOFT [Concomitant]
     Dosage: UNK
  4. LYRICA [Suspect]
     Indication: NEUROPATHY PERIPHERAL
     Dosage: 150 MG, 1X/DAY
     Route: 048
     Dates: start: 20120401, end: 20120401
  5. LYRICA [Suspect]
     Indication: NERVE COMPRESSION
     Dosage: 100 MG, 1X/DAY
     Route: 048
     Dates: start: 20120401

REACTIONS (9)
  - INCREASED APPETITE [None]
  - PAIN [None]
  - FACE OEDEMA [None]
  - SWELLING FACE [None]
  - MEMORY IMPAIRMENT [None]
  - SLUGGISHNESS [None]
  - SOMNOLENCE [None]
  - FEELING ABNORMAL [None]
  - WEIGHT INCREASED [None]
